FAERS Safety Report 25238167 (Version 2)
Quarter: 2025Q2

REPORT INFORMATION
  Report Type: Report from Study
  Country: BR (occurrence: BR)
  Receive Date: 20250425
  Receipt Date: 20250430
  Transmission Date: 20250716
  Serious: Yes (Other)
  Sender: CELLTRION
  Company Number: BR-CELLTRION INC.-2025BR011545

PATIENT

DRUGS (5)
  1. RITUXIMAB-ABBS [Suspect]
     Active Substance: RITUXIMAB-ABBS
     Indication: Pemphigus
     Route: 042
     Dates: start: 20250324
  2. PREDNISONE [Concomitant]
     Active Substance: PREDNISONE
     Indication: Pemphigus
     Route: 048
     Dates: start: 202405
  3. AZATHIOPRINE [Concomitant]
     Active Substance: AZATHIOPRINE
     Indication: Pemphigus
     Route: 048
     Dates: start: 202405
  4. VITAMIN B COMPLEX [Concomitant]
     Active Substance: CYANOCOBALAMIN\DEXPANTHENOL\NIACINAMIDE\PYRIDOXINE HYDROCHLORIDE\RIBOFLAVIN 5^-PHOSPHATE SODIUM\THIA
     Indication: Product used for unknown indication
     Route: 065
  5. FOLIC ACID [Concomitant]
     Active Substance: FOLIC ACID
     Indication: Product used for unknown indication
     Route: 065

REACTIONS (7)
  - Tooth impacted [Unknown]
  - Headache [Unknown]
  - Skin lesion [Unknown]
  - Sensory disturbance [Unknown]
  - Axillary mass [Unknown]
  - Soft tissue mass [Unknown]
  - Off label use [Unknown]

NARRATIVE: CASE EVENT DATE: 20250324
